FAERS Safety Report 6243851-3 (Version None)
Quarter: 2009Q2

REPORT INFORMATION
  Report Type: 
  Country: None (occurrence: None)
  Receive Date: 20090623
  Receipt Date: 20090608
  Transmission Date: 20091009
  Serious: Yes (Death)
  Sender: FDA-Public Use
  Company Number: 2009001736

PATIENT
  Age: 53 Year
  Sex: Male

DRUGS (12)
  1. ERLOTINIB (ERLOTINIB) (TABLET) (ERLOTINIB) [Suspect]
     Indication: HYPOPHARYNGEAL CANCER
     Dosage: 100 MG, QD, ORAL
     Route: 048
     Dates: start: 20040604
  2. ERLOTINIB (ERLOTINIB) (TABLET) (ERLOTINIB) [Suspect]
     Indication: SQUAMOUS CELL CARCINOMA
     Dosage: 100 MG, QD, ORAL
     Route: 048
     Dates: start: 20040604
  3. AMLODIPINE [Concomitant]
  4. CARISOPRODOL [Concomitant]
  5. HYDROCODONE (HYDROCODONE) [Concomitant]
  6. IBUPROFEN [Concomitant]
  7. MEGESTROL ACETATE [Concomitant]
  8. PRILOSEC [Concomitant]
  9. QUINAPRIL HCL [Concomitant]
  10. SYNTHROID [Concomitant]
  11. TUSSIONEX [Concomitant]
  12. REQUIP (ROPINOROLE HYDROCHLORIDE) [Concomitant]

REACTIONS (8)
  - BLOOD ALBUMIN DECREASED [None]
  - BLOOD CHLORIDE DECREASED [None]
  - BLOOD MAGNESIUM DECREASED [None]
  - BLOOD SODIUM DECREASED [None]
  - BRONCHIECTASIS [None]
  - JOINT SWELLING [None]
  - SCAR [None]
  - THYROXINE INCREASED [None]
